FAERS Safety Report 9420942 (Version 2)
Quarter: 2013Q3

REPORT INFORMATION
  Report Type: Spontaneous
  Country: CH (occurrence: CH)
  Receive Date: 20130723
  Receipt Date: 20130726
  Transmission Date: 20140515
  Serious: Yes (Other)
  Sender: FDA-Public Use
  Company Number: 7224182

PATIENT
  Age: 28 Year
  Sex: Female

DRUGS (2)
  1. EUTHYROX [Suspect]
     Indication: AMENORRHOEA
     Route: 048
     Dates: start: 20130301
  2. ESTROFEM [Suspect]
     Indication: AMENORRHOEA
     Route: 048
     Dates: start: 20130213, end: 20130302

REACTIONS (6)
  - Raynaud^s phenomenon [None]
  - Hypersensitivity [None]
  - Transaminases increased [None]
  - Rash maculo-papular [None]
  - Injection site pruritus [None]
  - Injection site rash [None]
